FAERS Safety Report 6938961-9 (Version None)
Quarter: 2010Q3

REPORT INFORMATION
  Report Type: 
  Country: None (occurrence: None)
  Receive Date: 20100824
  Receipt Date: 20100816
  Transmission Date: 20110219
  Serious: Yes (Hospitalization)
  Sender: FDA-Public Use
  Company Number: GXKR2010ES09172

PATIENT
  Age: 44 Year
  Sex: Male

DRUGS (11)
  1. CYCLOSPORINE [Suspect]
     Indication: HISTIOCYTOSIS HAEMATOPHAGIC
     Dosage: 100-150 MG/ DAY
     Route: 042
  2. ETHAMBUTOL (NGX) [Suspect]
     Indication: TUBERCULOSIS
     Dosage: 2 G/DAY
     Route: 048
  3. ISONIAZID [Suspect]
     Indication: TUBERCULOSIS
     Dosage: 300 MG/DAY
     Route: 048
  4. METHYLPREDNISOLONE 4MG TAB [Suspect]
     Indication: ANKYLOSING SPONDYLITIS
     Dosage: 60 MG/DAY
     Route: 042
  5. PREDNISONE (NGX) [Suspect]
     Indication: HISTIOCYTOSIS HAEMATOPHAGIC
     Dosage: 70 MG/DAY
     Route: 042
  6. PREDNISONE (NGX) [Suspect]
     Indication: IMMUNE RECONSTITUTION SYNDROME
     Dosage: 1 MG/KG/DAY
     Route: 048
  7. PYRAZINAMIDE [Suspect]
     Indication: TUBERCULOSIS
     Dosage: 1750 MG/DAY
     Route: 048
  8. RIFAMPICIN (NGX) [Suspect]
     Indication: TUBERCULOSIS
     Dosage: 600 MG/DAY
     Route: 048
  9. INFLIXIMAB [Suspect]
     Indication: ANKYLOSING SPONDYLITIS
     Dosage: 5 MG/DAY, OVER 2 HRS
  10. IBUPROFEN [Concomitant]
  11. IMMU-G [Concomitant]
     Dosage: 1 G/KG/DAY
     Route: 042

REACTIONS (11)
  - ACUTE RESPIRATORY DISTRESS SYNDROME [None]
  - DECREASED APPETITE [None]
  - FATIGUE [None]
  - HISTIOCYTOSIS HAEMATOPHAGIC [None]
  - IMMUNE RECONSTITUTION SYNDROME [None]
  - LUNG DISORDER [None]
  - NAUSEA [None]
  - PSEUDOMONAS INFECTION [None]
  - PYREXIA [None]
  - THROMBOCYTOPENIA [None]
  - TUBERCULOSIS [None]
